FAERS Safety Report 19964102 (Version 1)
Quarter: 2021Q4

REPORT INFORMATION
  Report Type: Spontaneous
  Country: US (occurrence: US)
  Receive Date: 20211018
  Receipt Date: 20211018
  Transmission Date: 20220303
  Serious: Yes (Hospitalization)
  Sender: FDA-Public Use
  Company Number: None

PATIENT
  Sex: Female

DRUGS (17)
  1. DROXIDOPA [Suspect]
     Active Substance: DROXIDOPA
     Indication: Neuropathy peripheral
     Dosage: ?          OTHER FREQUENCY:3 TIMES A DAY;
     Route: 048
     Dates: start: 20210619
  2. ALBUTEROL [Concomitant]
     Active Substance: ALBUTEROL
  3. AMLODIPINE [Concomitant]
     Active Substance: AMLODIPINE BESYLATE
  4. BENZONATATE [Concomitant]
     Active Substance: BENZONATATE
  5. BUMETANIDE [Concomitant]
     Active Substance: BUMETANIDE
  6. CLOBETASOL [Concomitant]
     Active Substance: CLOBETASOL
  7. Fludrocort [Concomitant]
  8. GG/Codeine [Concomitant]
  9. HYDRALAZINE [Concomitant]
     Active Substance: HYDRALAZINE HYDROCHLORIDE
  10. HYDROXYCHLOROQUINE [Concomitant]
     Active Substance: HYDROXYCHLOROQUINE
  11. Ipratropium/Sol Albuterol [Concomitant]
  12. KETOCONAZOLE [Concomitant]
     Active Substance: KETOCONAZOLE
  13. MIDODRINE [Concomitant]
     Active Substance: MIDODRINE
  14. MYRBETRIQ [Concomitant]
     Active Substance: MIRABEGRON
  15. ONDANSETRON [Concomitant]
     Active Substance: ONDANSETRON
  16. PREDNISONE [Concomitant]
     Active Substance: PREDNISONE
  17. TIZANIDINE [Concomitant]
     Active Substance: TIZANIDINE

REACTIONS (1)
  - Therapy interrupted [None]
